FAERS Safety Report 5905721-7 (Version None)
Quarter: 2008Q4

REPORT INFORMATION
  Report Type: 
  Country: None (occurrence: None)
  Receive Date: 20081002
  Receipt Date: 20080925
  Transmission Date: 20090506
  Serious: Yes (Death, Other)
  Sender: FDA-Public Use
  Company Number: PHHO1997FR02474

PATIENT
  Sex: Male
  Weight: 58 kg

DRUGS (10)
  1. NEORAL [Suspect]
     Route: 048
     Dates: start: 19960311, end: 19961106
  2. PROGRAF [Concomitant]
     Dosage: UNSPECIFIED
     Route: 048
     Dates: start: 19961116
  3. SOLUPRED [Concomitant]
     Dosage: UNSPECIFIED
     Route: 048
  4. PRIMPERAN TAB [Concomitant]
     Dosage: UNSPECIFIED
     Route: 048
     Dates: start: 19961022
  5. MINOCIN [Concomitant]
     Dosage: UNSPECIFIED
     Route: 048
     Dates: start: 19960920
  6. MONO-TILDIEM [Concomitant]
     Dosage: UNSPECIFIED
     Route: 048
     Dates: start: 19960708
  7. FUNGIZONE [Concomitant]
     Dosage: UNSPECIFIED
     Route: 048
     Dates: start: 19961022
  8. DIAN* [Concomitant]
     Dosage: UNSPECIFIED
     Route: 048
     Dates: start: 19961105
  9. ELISOR [Concomitant]
     Dosage: UNSPECIFIED
     Route: 048
     Dates: start: 19961203
  10. HEMI-DAONIL [Concomitant]
     Dosage: UNSPECIFIED
     Route: 048
     Dates: start: 19961203

REACTIONS (2)
  - DEATH [None]
  - NEOPLASM [None]
